FAERS Safety Report 6756134-X (Version None)
Quarter: 2010Q2

REPORT INFORMATION
  Report Type: 
  Country: None (occurrence: None)
  Receive Date: 20100604
  Receipt Date: 20100525
  Transmission Date: 20101027
  Serious: Yes (Other)
  Sender: FDA-Public Use
  Company Number: CA-JNJFOC-20100510121

PATIENT
  Sex: Female

DRUGS (7)
  1. REMICADE [Suspect]
     Indication: DRUG USE FOR UNKNOWN INDICATION
     Route: 042
  2. IMURAN [Suspect]
     Indication: DRUG USE FOR UNKNOWN INDICATION
  3. AMITRIPTYLINE [Concomitant]
  4. DYAZIDE [Concomitant]
  5. ATENOLOL [Concomitant]
  6. LOMOTIL [Concomitant]
  7. ALL OTHER THERAPEUTIC DRUGS [Concomitant]

REACTIONS (3)
  - BALANCE DISORDER [None]
  - COGNITIVE DISORDER [None]
  - NEUROPATHY PERIPHERAL [None]
